FAERS Safety Report 4904427-0 (Version None)
Quarter: 2006Q1

REPORT INFORMATION
  Report Type: 
  Country: None (occurrence: None)
  Receive Date: 20060208
  Receipt Date: 20050902
  Transmission Date: 20060701
  Serious: No
  Sender: FDA-Public Use
  Company Number: US-GLAXOSMITHKLINE-A0572866A

PATIENT
  Age: 38 Year
  Sex: Male

DRUGS (5)
  1. PAXIL [Suspect]
     Dosage: 30MG PER DAY
     Route: 048
  2. TRICOR [Concomitant]
  3. LISINOPRIL [Concomitant]
  4. HYDROCHLOROTHIAZIDE [Concomitant]
  5. ZOCOR [Concomitant]

REACTIONS (1)
  - FATIGUE [None]
